FAERS Safety Report 6704988-5 (Version None)
Quarter: 2010Q2

REPORT INFORMATION
  Report Type: 
  Country: None (occurrence: None)
  Receive Date: 20100430
  Receipt Date: 20100426
  Transmission Date: 20101027
  Serious: Yes (Hospitalization)
  Sender: FDA-Public Use
  Company Number: A0855993A

PATIENT
  Sex: Female
  Weight: 166 kg

DRUGS (4)
  1. ELTROMBOPAG [Suspect]
     Indication: THROMBOCYTOPENIA
     Route: 048
     Dates: start: 20100202, end: 20100222
  2. ELTROMBOPAG [Suspect]
     Route: 048
     Dates: start: 20100223
  3. PEG-INTRON [Suspect]
     Dosage: 120UG WEEKLY
     Route: 058
     Dates: start: 20100223
  4. REBETOL [Suspect]
     Route: 048
     Dates: start: 20100223

REACTIONS (1)
  - PORTAL VEIN THROMBOSIS [None]
